FAERS Safety Report 13169989 (Version 1)
Quarter: 2017Q1

REPORT INFORMATION
  Report Type: Spontaneous
  Country: US (occurrence: US)
  Receive Date: 20170131
  Receipt Date: 20170131
  Transmission Date: 20170428
  Serious: No
  Sender: FDA-Public Use
  Company Number: US-ELI_LILLY_AND_COMPANY-US201701010615

PATIENT
  Sex: Female

DRUGS (5)
  1. HUMALOG MIX75/25 [Suspect]
     Active Substance: INSULIN LISPRO
     Indication: TYPE 2 DIABETES MELLITUS
     Dosage: 40 U, EACH MORNING
     Route: 065
     Dates: start: 201601
  2. HUMALOG MIX75/25 [Suspect]
     Active Substance: INSULIN LISPRO
     Dosage: 50 U, EACH EVENING
     Route: 065
     Dates: start: 201601
  3. HUMALOG [Suspect]
     Active Substance: INSULIN LISPRO
     Indication: TYPE 2 DIABETES MELLITUS
     Dosage: UNK, PRN ONLY FOR SPIKES
     Route: 065
     Dates: start: 201612
  4. HUMALOG MIX75/25 [Suspect]
     Active Substance: INSULIN LISPRO
     Dosage: 40 U, EACH MORNING
     Route: 065
  5. HUMALOG MIX75/25 [Suspect]
     Active Substance: INSULIN LISPRO
     Dosage: 50 U, EACH EVENING
     Route: 065

REACTIONS (6)
  - Influenza [Unknown]
  - Blood glucose increased [Unknown]
  - Bronchitis [Unknown]
  - Upper respiratory tract infection [Unknown]
  - Incorrect drug administration duration [Unknown]
  - Blood glucose abnormal [Unknown]

NARRATIVE: CASE EVENT DATE: 201601
